FAERS Safety Report 6053980-5 (Version None)
Quarter: 2009Q1

REPORT INFORMATION
  Report Type: 
  Country: None (occurrence: None)
  Receive Date: 20090127
  Receipt Date: 20090121
  Transmission Date: 20090719
  Serious: Yes (Hospitalization)
  Sender: FDA-Public Use
  Company Number: FR-MERCK-0901FRA00031

PATIENT
  Age: 46 Year
  Sex: Male

DRUGS (9)
  1. ISENTRESS [Suspect]
     Indication: HIV INFECTION
     Route: 048
     Dates: start: 20081211, end: 20081216
  2. EMTRICITABINE AND TENOFOVIR DISOPROXIL FUMARATE [Suspect]
     Indication: HIV INFECTION
     Route: 048
     Dates: start: 20081211, end: 20081216
  3. DARUNAVIR [Suspect]
     Indication: HIV INFECTION
     Route: 048
     Dates: start: 20081211, end: 20081216
  4. CEFTAZIDIME [Suspect]
     Indication: INFECTION
     Route: 065
     Dates: start: 20081205, end: 20081216
  5. ACYCLOVIR [Suspect]
     Route: 065
     Dates: start: 20081211, end: 20081216
  6. RITONAVIR [Suspect]
     Indication: HIV INFECTION
     Route: 048
     Dates: start: 20081211, end: 20081216
  7. PENTAMIDINE ISETHIONATE [Concomitant]
  8. FONDAPARINUX SODIUM [Concomitant]
     Route: 065
  9. AMPHOTERICIN B [Concomitant]
     Route: 065
     Dates: end: 20081215

REACTIONS (1)
  - PRURITUS [None]
